FAERS Safety Report 9934604 (Version 5)
Quarter: 2014Q2

REPORT INFORMATION
  Report Type: Spontaneous
  Country: US (occurrence: US)
  Receive Date: 20140228
  Receipt Date: 20140416
  Transmission Date: 20141212
  Serious: Yes (Hospitalization, Disabling, Other)
  Sender: FDA-Public Use
  Company Number: US-009507513-1204USA00535

PATIENT
  Sex: Female
  Weight: 68.93 kg

DRUGS (5)
  1. FOSAMAX [Suspect]
     Indication: OSTEOPOROSIS
     Dosage: 10 MG, UNK
     Route: 048
     Dates: start: 1997, end: 200606
  2. FOSAMAX [Suspect]
     Indication: OSTEOPENIA
     Dosage: 70 MG, QW
     Route: 048
     Dates: end: 200606
  3. CALCIUM (UNSPECIFIED) [Concomitant]
     Dosage: UNK
  4. VITAMIN D (UNSPECIFIED) [Concomitant]
     Dosage: UNK
     Dates: start: 1970, end: 2006
  5. PRILOSEC [Concomitant]
     Dosage: UNK
     Dates: start: 2000, end: 2003

REACTIONS (49)
  - Intramedullary rod insertion [Unknown]
  - Femur fracture [Unknown]
  - Urinary tract infection [Unknown]
  - Urinary retention [Unknown]
  - Joint arthroplasty [Unknown]
  - Bone disorder [Unknown]
  - Osteoporosis [Not Recovered/Not Resolved]
  - Femur fracture [Recovered/Resolved]
  - Hyperlipidaemia [Unknown]
  - Dyspnoea [Unknown]
  - Hypertension [Unknown]
  - Anaemia postoperative [Unknown]
  - Bladder operation [Unknown]
  - Contusion [Unknown]
  - Sciatica [Unknown]
  - Ligament sprain [Unknown]
  - Anaemia [Unknown]
  - Pulmonary mass [Unknown]
  - Cardiomegaly [Unknown]
  - Atelectasis [Unknown]
  - Exostosis [Unknown]
  - Foot fracture [Recovered/Resolved]
  - Foot fracture [Unknown]
  - Myositis ossificans [Unknown]
  - Avulsion fracture [Unknown]
  - Foot operation [Unknown]
  - Foot fracture [Unknown]
  - Rib fracture [Recovered/Resolved]
  - Carotid bruit [Unknown]
  - Osteoarthritis [Unknown]
  - Arthropathy [Unknown]
  - Foot fracture [Recovered/Resolved]
  - Anxiety [Recovered/Resolved]
  - Intervertebral disc protrusion [Unknown]
  - Intervertebral disc space narrowing [Unknown]
  - Rib fracture [Unknown]
  - Low turnover osteopathy [Unknown]
  - Contusion [Unknown]
  - Fracture nonunion [Unknown]
  - Foot fracture [Unknown]
  - Foot fracture [Unknown]
  - Tendonitis [Unknown]
  - Vitamin D decreased [Unknown]
  - Drug ineffective [Unknown]
  - Back pain [Not Recovered/Not Resolved]
  - Oedema peripheral [Unknown]
  - Gastrooesophageal reflux disease [Unknown]
  - Drug ineffective [Unknown]
  - Pain in extremity [Unknown]
